FAERS Safety Report 7167528-5 (Version None)
Quarter: 2010Q4

REPORT INFORMATION
  Report Type: 
  Country: None (occurrence: None)
  Receive Date: 20101216
  Receipt Date: 20100304
  Transmission Date: 20110411
  Serious: No
  Sender: FDA-Public Use
  Company Number: A0848230A

PATIENT
  Age: 68 Year
  Sex: Male

DRUGS (8)
  1. NICOTINE POLACRILEX [Suspect]
  2. NICORETTE [Suspect]
  3. NICODERM CQ [Suspect]
  4. BLOOD PRESSURE MEDICATION [Concomitant]
  5. ASPIRIN [Concomitant]
  6. ZETIA [Concomitant]
  7. LEXAPRO [Concomitant]
  8. NEXIUM [Concomitant]

REACTIONS (3)
  - DRUG ADMINISTRATION ERROR [None]
  - NAUSEA [None]
  - NICOTINE DEPENDENCE [None]
